FAERS Safety Report 11713828 (Version 1)
Quarter: 2015Q4

REPORT INFORMATION
  Report Type: Spontaneous
  Country: US (occurrence: None)
  Receive Date: 20151106
  Receipt Date: 20151106
  Transmission Date: 20160304
  Serious: Yes (Hospitalization)
  Sender: FDA-Public Use
  Company Number: None

PATIENT
  Sex: Female
  Weight: 97.52 kg

DRUGS (1)
  1. LATUDA [Suspect]
     Active Substance: LURASIDONE HYDROCHLORIDE
     Indication: SUICIDAL IDEATION
     Dosage: 1 AT BEDTIME

REACTIONS (6)
  - Depression [None]
  - Weight increased [None]
  - Product use issue [None]
  - Vision blurred [None]
  - Sleep disorder [None]
  - Suicidal ideation [None]
